FAERS Safety Report 20189687 (Version 1)
Quarter: 2021Q4

REPORT INFORMATION
  Report Type: Report from Study
  Country: FR (occurrence: FR)
  Receive Date: 20211215
  Receipt Date: 20211215
  Transmission Date: 20220303
  Serious: Yes (Hospitalization)
  Sender: FDA-Public Use
  Company Number: FR-JNJFOC-20211053163

PATIENT
  Age: 81 Year
  Sex: Female

DRUGS (3)
  1. DEXAMETHASONE [Suspect]
     Active Substance: DEXAMETHASONE
     Indication: Plasma cell myeloma
     Dosage: 40 MILLIGRAM, QW, (TAKE 2 DOSE(S)/WEEK 4 WEEK(S)/CYCLE)
     Route: 065
     Dates: end: 20190708
  2. VELCADE [Suspect]
     Active Substance: BORTEZOMIB
     Indication: Plasma cell myeloma
     Dosage: 2.1 MILLIGRAM, QW, (1 DOSE(S)/WEEK 4 WEEK(S)/CYCLE)
     Route: 065
     Dates: end: 20190708
  3. CYCLOPHOSPHAMIDE [Suspect]
     Active Substance: CYCLOPHOSPHAMIDE
     Indication: Plasma cell myeloma
     Dosage: 483 MILLIGRAM, QW, (1 DOSE(S)/WEEK 3 WEEK(S)/CYCLE)
     Route: 065
     Dates: end: 20190708

REACTIONS (1)
  - Pleural effusion [Unknown]
